FAERS Safety Report 10365590 (Version 1)
Quarter: 2014Q3

REPORT INFORMATION
  Report Type: Spontaneous
  Country: US (occurrence: None)
  Receive Date: 20140804
  Receipt Date: 20140804
  Transmission Date: 20150326
  Serious: Yes (Hospitalization)
  Sender: FDA-Public Use
  Company Number: SYM-2014-23449

PATIENT
  Age: 35 Year
  Sex: Male

DRUGS (2)
  1. VENLAFAXINE [Suspect]
     Active Substance: VENLAFAXINE HYDROCHLORIDE
     Indication: ANXIETY
     Dosage: 10 TO 15 PILLS PER DAY, ORAL
     Route: 048
  2. RISPERIDONE ( INJECTION) (RISPERIDONE) [Concomitant]

REACTIONS (4)
  - Delusion [None]
  - Euphoric mood [None]
  - Quality of life decreased [None]
  - Abnormal behaviour [None]
